FAERS Safety Report 5841402-6 (Version None)
Quarter: 2008Q3

REPORT INFORMATION
  Report Type: 
  Country: None (occurrence: None)
  Receive Date: 20080731
  Receipt Date: 20080519
  Transmission Date: 20090109
  Serious: No
  Sender: FDA-Public Use
  Company Number: US200805003937

PATIENT
  Age: 60 Year
  Sex: Female

DRUGS (4)
  1. BYETTA [Suspect]
     Dosage: 5 UG, SUBCUTANEOUS
     Route: 058
  2. AMARYL [Concomitant]
  3. METFORMIN HCL [Concomitant]
  4. EXENATIDE [Concomitant]

REACTIONS (1)
  - LIP SWELLING [None]
